FAERS Safety Report 7350336-X (Version None)
Quarter: 2011Q1

REPORT INFORMATION
  Report Type: 
  Country: None (occurrence: None)
  Receive Date: 20110222
  Receipt Date: 20110114
  Transmission Date: 20110831
  Serious: No
  Sender: FDA-Public Use
  Company Number: 025672

PATIENT

DRUGS (1)
  1. LACOSAMIDE [Suspect]

REACTIONS (2)
  - BALANCE DISORDER [None]
  - DIZZINESS [None]
